FAERS Safety Report 5338511-7 (Version None)
Quarter: 2007Q2

REPORT INFORMATION
  Report Type: 
  Country: None (occurrence: None)
  Receive Date: 20070405
  Receipt Date: 20061108
  Transmission Date: 20071010
  Serious: No
  Sender: FDA-Public Use
  Company Number: US200611001390

PATIENT
  Age: 45 Year
  Sex: Male

DRUGS (1)
  1. CYMBALTA [Suspect]
     Indication: DEPRESSION
     Dosage: 30 MG, 2/D
     Dates: start: 20061001, end: 20061101

REACTIONS (1)
  - CHEST PAIN [None]
